FAERS Safety Report 4778327-3 (Version None)
Quarter: 2005Q3

REPORT INFORMATION
  Report Type: 
  Country: None (occurrence: None)
  Receive Date: 20050923
  Receipt Date: 20050923
  Transmission Date: 20060218
  Serious: Yes (Death)
  Sender: FDA-Public Use
  Company Number: None

PATIENT
  Age: 58 Year
  Sex: Male
  Weight: 73.0291 kg

DRUGS (1)
  1. ZOLOFT [Suspect]
     Indication: MAJOR DEPRESSION
     Dosage: 100 MG HS PO
     Route: 048

REACTIONS (3)
  - COMPLETED SUICIDE [None]
  - INCORRECT DOSE ADMINISTERED [None]
  - INJURY ASPHYXIATION [None]
